APPROVED DRUG PRODUCT: PEMOLINE
Active Ingredient: PEMOLINE
Strength: 37.5MG
Dosage Form/Route: TABLET, CHEWABLE;ORAL
Application: A075555 | Product #001
Applicant: TEVA PHARMACEUTICALS USA
Approved: Feb 18, 2000 | RLD: No | RS: No | Type: DISCN